FAERS Safety Report 5747636-3 (Version None)
Quarter: 2008Q2

REPORT INFORMATION
  Report Type: 
  Country: None (occurrence: None)
  Receive Date: 20080523
  Receipt Date: 20080519
  Transmission Date: 20081010
  Serious: Yes (Hospitalization, Other)
  Sender: FDA-Public Use
  Company Number: CA-AVENTIS-200814656GDDC

PATIENT
  Age: 46 Year
  Sex: Female

DRUGS (5)
  1. TRIAMCINOLONE [Suspect]
     Dosage: DOSE QUANTITY: 4
     Route: 045
     Dates: start: 20080407
  2. EXCEDRIN EXTRA STRENGTH [Concomitant]
     Indication: TENSION HEADACHE
     Dates: start: 20070401
  3. EXCEDRIN (MIGRAINE) [Concomitant]
     Indication: MIGRAINE
     Dates: start: 20071001
  4. ADVIL [Concomitant]
     Indication: HEADACHE
     Dates: start: 19980101
  5. TYLENOL [Concomitant]
     Indication: HEADACHE
     Dates: start: 19980101

REACTIONS (2)
  - HYPOTENSION [None]
  - MIGRAINE [None]
